FAERS Safety Report 13269003 (Version 6)
Quarter: 2018Q3

REPORT INFORMATION
  Report Type: Spontaneous
  Country: GB (occurrence: GB)
  Receive Date: 20170224
  Receipt Date: 20180718
  Transmission Date: 20181010
  Serious: Yes (Hospitalization, Other)
  Sender: FDA-Public Use
  Company Number: GB-SA-2017SA028641

PATIENT
  Age: 46 Year
  Sex: Female

DRUGS (14)
  1. RIFAMPICIN [Suspect]
     Active Substance: RIFAMPIN
     Dosage: 300MG,QD
     Route: 048
     Dates: start: 201606, end: 20160923
  2. SULFASALAZINE. [Concomitant]
     Active Substance: SULFASALAZINE
     Dosage: 1 G QD
     Route: 065
  3. CLINDAMYCIN. [Suspect]
     Active Substance: CLINDAMYCIN
     Dosage: 300 MG,QD
     Route: 065
     Dates: start: 201606, end: 20160923
  4. EPILIM [Concomitant]
     Active Substance: VALPROATE SODIUM
     Dosage: UNK UNK,UNK
     Route: 065
  5. SULFASALAZINE. [Concomitant]
     Active Substance: SULFASALAZINE
     Dosage: 2 G, QD
  6. CLINDAMYCIN. [Suspect]
     Active Substance: CLINDAMYCIN
     Dosage: 600 MG, QD
     Route: 065
     Dates: start: 201606, end: 20160923
  7. HUMIRA [Suspect]
     Active Substance: ADALIMUMAB
     Indication: HIDRADENITIS
     Dosage: 40 MG,QW
     Route: 058
  8. HYDROXYCHLOROQUINE [Concomitant]
     Active Substance: HYDROXYCHLOROQUINE
     Dosage: 200 MG,QD
     Route: 065
  9. ROACTEMRA [Suspect]
     Active Substance: TOCILIZUMAB
     Indication: RHEUMATOID ARTHRITIS
     Dosage: 162 MG,UNK
     Route: 058
  10. CELECOXIB. [Concomitant]
     Active Substance: CELECOXIB
     Dosage: 100 MG,QD
     Route: 065
  11. OLANZAPINE. [Concomitant]
     Active Substance: OLANZAPINE
     Dosage: UNK UNK,UNK
     Route: 065
  12. RIFAMPICIN [Suspect]
     Active Substance: RIFAMPIN
     Dosage: 600 MG, QD
     Route: 048
     Dates: start: 201606, end: 20160923
  13. PARACETAMOL [Concomitant]
     Active Substance: ACETAMINOPHEN
     Dosage: 1 G,UNK
     Route: 065
  14. CELECOXIB. [Concomitant]
     Active Substance: CELECOXIB
     Dosage: 200 MG, QD
     Route: 065

REACTIONS (4)
  - Tubo-ovarian abscess [Recovering/Resolving]
  - Adenocarcinoma [Unknown]
  - Hidradenitis [Unknown]
  - Hidradenitis [Recovered/Resolved]

NARRATIVE: CASE EVENT DATE: 2016
